FAERS Safety Report 5081625-X (Version None)
Quarter: 2006Q3

REPORT INFORMATION
  Report Type: 
  Country: None (occurrence: None)
  Receive Date: 20060810
  Receipt Date: 20060727
  Transmission Date: 20061208
  Serious: Yes (Hospitalization)
  Sender: FDA-Public Use
  Company Number: RU200607000214

PATIENT
  Sex: Male

DRUGS (4)
  1. GEMCITABINE [Suspect]
     Indication: LUNG NEOPLASM MALIGNANT
     Dosage: 2000 MG, OTHER, INTRAVENOUS
     Route: 042
     Dates: start: 20060609, end: 20060616
  2. GEMCITABINE [Suspect]
  3. GEMCITABINE [Suspect]
  4. CISPLATIN [Concomitant]

REACTIONS (1)
  - DEEP VEIN THROMBOSIS [None]
